FAERS Safety Report 10832134 (Version 1)
Quarter: 2015Q1

REPORT INFORMATION
  Report Type: Report from Study
  Country: CA (occurrence: CA)
  Receive Date: 20150219
  Receipt Date: 20150219
  Transmission Date: 20150721
  Serious: Yes (Death, Other)
  Sender: FDA-Public Use
  Company Number: PHHY2014CA007649

PATIENT
  Age: 66 Year
  Sex: Female

DRUGS (3)
  1. SANDOSTATIN LAR DEPOT [Suspect]
     Active Substance: OCTREOTIDE ACETATE
     Indication: NEUROENDOCRINE TUMOUR
     Dosage: 30 MG, EVERY 4 WEEKS
     Route: 030
     Dates: start: 20131115
  2. SANDOSTATIN LAR DEPOT [Suspect]
     Active Substance: OCTREOTIDE ACETATE
     Dosage: 60 MG, QMO
     Route: 030
  3. SANDOSTATIN LAR DEPOT [Suspect]
     Active Substance: OCTREOTIDE ACETATE
     Dosage: 60 MG, EVERY 4 WEEKS
     Route: 030

REACTIONS (23)
  - Muscle spasms [Unknown]
  - Weight decreased [Not Recovered/Not Resolved]
  - Metastases to liver [Unknown]
  - Fatigue [Not Recovered/Not Resolved]
  - Night sweats [Unknown]
  - Tremor [Unknown]
  - Blood pressure increased [Unknown]
  - Limb discomfort [Unknown]
  - Paraesthesia [Unknown]
  - Malignant neoplasm progression [Unknown]
  - Hypertension [Unknown]
  - Early satiety [Unknown]
  - Hyperhidrosis [Unknown]
  - Oedema peripheral [Not Recovered/Not Resolved]
  - Erythema [Not Recovered/Not Resolved]
  - Death [Fatal]
  - Decreased appetite [Unknown]
  - Abdominal pain upper [Unknown]
  - Emotional disorder [Unknown]
  - Lacrimation increased [Unknown]
  - International normalised ratio increased [Unknown]
  - Ascites [Unknown]
  - Hypoglycaemia [Unknown]

NARRATIVE: CASE EVENT DATE: 20140828
